FAERS Safety Report 18222884 (Version 1)
Quarter: 2020Q3

REPORT INFORMATION
  Report Type: Spontaneous
  Country: US (occurrence: US)
  Receive Date: 20200902
  Receipt Date: 20200902
  Transmission Date: 20201103
  Serious: Yes (Hospitalization)
  Sender: FDA-Public Use
  Company Number: US-MYLANLABS-2020M1075546

PATIENT
  Age: 17 Year
  Sex: Male

DRUGS (4)
  1. BACLOFEN. [Suspect]
     Active Substance: BACLOFEN
     Dosage: CONTINUOUS INFUSION
     Route: 037
  2. BACLOFEN. [Suspect]
     Active Substance: BACLOFEN
     Indication: MUSCLE SPASTICITY
     Dosage: BOLUS
     Route: 037
  3. BACLOFEN. [Suspect]
     Active Substance: BACLOFEN
     Dosage: BACLOFEN DOSE WAS REDUCEDUNK
     Route: 037
  4. BACLOFEN. [Suspect]
     Active Substance: BACLOFEN
     Dosage: BACLOFEN DOSING WAS SET AT HALF OF HIS PRESENTING DOSE
     Route: 037

REACTIONS (11)
  - Palpitations [Recovering/Resolving]
  - Toxicity to various agents [Recovering/Resolving]
  - Dyspnoea [Recovering/Resolving]
  - Autonomic nervous system imbalance [Recovering/Resolving]
  - Choking sensation [Recovering/Resolving]
  - Accidental overdose [Recovering/Resolving]
  - Paradoxical drug reaction [Recovering/Resolving]
  - Hypertension [Recovering/Resolving]
  - Respiratory depression [Recovering/Resolving]
  - Somnolence [Recovered/Resolved]
  - Sinus tachycardia [Recovering/Resolving]
